FAERS Safety Report 6673801-7 (Version None)
Quarter: 2010Q2

REPORT INFORMATION
  Report Type: 
  Country: None (occurrence: None)
  Receive Date: 20100407
  Receipt Date: 20100326
  Transmission Date: 20101027
  Serious: Yes (Hospitalization)
  Sender: FDA-Public Use
  Company Number: 2010039655

PATIENT
  Age: 76 Year

DRUGS (12)
  1. FRAGMIN [Suspect]
     Indication: PULMONARY EMBOLISM
     Dosage: 7500 IU, 2X/DAY, SUBCUTANEOUS
     Route: 058
     Dates: start: 20100210, end: 20100226
  2. CARDIKET (ISOSORBIDE DINITRATE) [Concomitant]
  3. MEDROL [Concomitant]
  4. HELICID (OMEPRAZOLE) [Concomitant]
  5. RAMIPRIL [Concomitant]
  6. TRAMADOL HYDROHLORIDE [Concomitant]
  7. MAXI-KALZ (CALCIUM CITRATE) [Concomitant]
  8. DETRALEX (DIOSMIN, HESPERIDIN) [Concomitant]
  9. VASOCARDIN (METOPROLOL TARTRATE) [Concomitant]
  10. SOLU-MEDROL [Concomitant]
  11. VASILIP (SIMVASTATIN) [Concomitant]
  12. FURON (FUROSEMIDE) [Concomitant]

REACTIONS (4)
  - HAEMATOMA [None]
  - HAEMOGLOBIN DECREASED [None]
  - OEDEMA PERIPHERAL [None]
  - VEIN DISORDER [None]
